FAERS Safety Report 4308706-X (Version None)
Quarter: 2004Q1

REPORT INFORMATION
  Report Type: 
  Country: None (occurrence: None)
  Receive Date: 20040227
  Receipt Date: 20040210
  Transmission Date: 20041129
  Serious: Yes (Other)
  Sender: FDA-Public Use
  Company Number: MEDI-0001454

PATIENT
  Age: 4 Month
  Sex: Male
  Weight: 8.1647 kg

DRUGS (1)
  1. SYNAGIS [Suspect]
     Indication: ANTIVIRAL PROPHYLAXIS
     Dosage: 120 MG, 1 IN 30 D, INTRAMUSCULAR
     Route: 030
     Dates: start: 20031111, end: 20040209

REACTIONS (6)
  - CRYING [None]
  - CYANOSIS [None]
  - EAR INFECTION [None]
  - OXYGEN SATURATION DECREASED [None]
  - PYREXIA [None]
  - RASH MACULAR [None]
